FAERS Safety Report 16203748 (Version 4)
Quarter: 2019Q4

REPORT INFORMATION
  Report Type: Spontaneous
  Country: US (occurrence: US)
  Receive Date: 20190416
  Receipt Date: 20191113
  Transmission Date: 20200122
  Serious: Yes (Hospitalization, Other)
  Sender: FDA-Public Use
  Company Number: US-PARI RESPIRATORY EQUIPMENT, INC.-2019PAR00026

PATIENT
  Age: 6 Year
  Sex: Male
  Weight: 16 kg

DRUGS (9)
  1. KITABIS PAK [Suspect]
     Active Substance: TOBRAMYCIN
     Indication: HYPOXIA
     Dosage: 300 MG, 2X/DAY EVERY OTHER MONTH
  2. LEVETIRACETAM. [Concomitant]
     Active Substance: LEVETIRACETAM
  3. KITABIS PAK [Suspect]
     Active Substance: TOBRAMYCIN
     Indication: HYPOCAPNIA
     Dosage: 300 MG, 2X/DAY EVERY OTHER MONTH
  4. FLOVENT [Concomitant]
     Active Substance: FLUTICASONE PROPIONATE
  5. LEVOCARNITINE. [Concomitant]
     Active Substance: LEVOCARNITINE
  6. KITABIS PAK [Suspect]
     Active Substance: TOBRAMYCIN
     Indication: CHRONIC RESPIRATORY FAILURE
     Dosage: 300 MG, 2X/DAY 28 DAYS ON AND 28 DAYS OFF
     Dates: start: 20190212
  7. PHENOBARBITAL. [Concomitant]
     Active Substance: PHENOBARBITAL
  8. EPIDIOLEX [Suspect]
     Active Substance: CANNABIDIOL
  9. VIMPAT [Concomitant]
     Active Substance: LACOSAMIDE

REACTIONS (8)
  - Off label use [Unknown]
  - Malaise [Not Recovered/Not Resolved]
  - Seizure [Unknown]
  - Hospitalisation [Not Recovered/Not Resolved]
  - Respiratory disorder [Unknown]
  - Oesophagogastric fundoplasty [Recovered/Resolved]
  - Ill-defined disorder [Unknown]
  - Product dose omission [Recovered/Resolved]

NARRATIVE: CASE EVENT DATE: 2019
